FAERS Safety Report 13754424 (Version 1)
Quarter: 2017Q3

REPORT INFORMATION
  Report Type: Spontaneous
  Country: KR (occurrence: KR)
  Receive Date: 20170714
  Receipt Date: 20170714
  Transmission Date: 20171127
  Serious: Yes (Other)
  Sender: FDA-Public Use
  Company Number: KR-PFIZER INC-2017300886

PATIENT

DRUGS (1)
  1. SUTENE [Suspect]
     Active Substance: SUNITINIB MALATE

REACTIONS (2)
  - Tuberculosis [Unknown]
  - Decreased immune responsiveness [Unknown]
